FAERS Safety Report 17041478 (Version 1)
Quarter: 2019Q4

REPORT INFORMATION
  Report Type: Report from Study
  Country: US (occurrence: US)
  Receive Date: 20191118
  Receipt Date: 20191118
  Transmission Date: 20200122
  Serious: Yes (Hospitalization)
  Sender: FDA-Public Use
  Company Number: US-ROCHE-2464620

PATIENT
  Age: 67 Year
  Sex: Female
  Weight: 74.91 kg

DRUGS (5)
  1. OCREVUS [Suspect]
     Active Substance: OCRELIZUMAB
     Dosage: 600MG IV EVERY 6 MONTHS
     Route: 042
     Dates: start: 20190402
  2. OCREVUS [Suspect]
     Active Substance: OCRELIZUMAB
     Dosage: 600MG IV EVERY 6 MONTHS
     Route: 042
     Dates: start: 20181002
  3. OCREVUS [Suspect]
     Active Substance: OCRELIZUMAB
     Indication: RELAPSING-REMITTING MULTIPLE SCLEROSIS
     Dosage: 600MG IV EVERY 6 MONTHS
     Route: 042
     Dates: start: 20180404
  4. OCREVUS [Suspect]
     Active Substance: OCRELIZUMAB
     Route: 042
     Dates: start: 20171016
  5. OCREVUS [Suspect]
     Active Substance: OCRELIZUMAB
     Route: 042
     Dates: start: 20171002

REACTIONS (3)
  - Pneumonia [Recovered/Resolved]
  - Asthenia [Recovering/Resolving]
  - Device occlusion [Recovering/Resolving]

NARRATIVE: CASE EVENT DATE: 201909
